APPROVED DRUG PRODUCT: NOROXIN
Active Ingredient: NORFLOXACIN
Strength: 400MG **Federal Register determination that product was not discontinued or withdrawn for safety or effectiveness reasons**
Dosage Form/Route: TABLET;ORAL
Application: N019384 | Product #002
Applicant: MERCK RESEARCH LABORATORIES DIV MERCK CO INC
Approved: Oct 31, 1986 | RLD: Yes | RS: No | Type: DISCN